FAERS Safety Report 21848155 (Version 1)
Quarter: 2023Q1

REPORT INFORMATION
  Report Type: Spontaneous
  Country: None (occurrence: GB)
  Receive Date: 20230111
  Receipt Date: 20230111
  Transmission Date: 20230418
  Serious: Yes (Other)
  Sender: FDA-Public Use
  Company Number: GB-B.Braun Medical Inc.-2136582

PATIENT
  Age: 46 Year
  Sex: Female

DRUGS (2)
  1. LIDOCAINE HYDROCHLORIDE [Suspect]
     Active Substance: LIDOCAINE HYDROCHLORIDE
  2. HYALURONIC ACID [Suspect]
     Active Substance: HYALURONIC ACID

REACTIONS (2)
  - Groin pain [Recovering/Resolving]
  - Off label use [Recovering/Resolving]
